FAERS Safety Report 10241506 (Version 1)
Quarter: 2014Q1

REPORT INFORMATION
  Report Type: Spontaneous
  Country: US (occurrence: None)
  Receive Date: 20140306
  Receipt Date: 20140306
  Transmission Date: 20141002
  Serious: Yes (Other)
  Sender: FDA-Public Use
  Company Number: 163-21880-13043415

PATIENT
  Age: 67 Year
  Sex: Female
  Weight: 58 kg

DRUGS (11)
  1. REVLIMID (LENALIDOMIDE) (25 MILLIGRAM, CAPSULES) [Suspect]
     Indication: PLASMA CELL MYELOMA
     Route: 048
     Dates: start: 20110920, end: 2012
  2. DEXAMETHASONE (UNKNOWN) [Concomitant]
  3. SYNTHROID (LEVOTHYROXINE SODIUM) (UNKNOWN) [Concomitant]
  4. ZOMETA (ZOLEDRONIC ACID) (UNKNOWN) [Concomitant]
  5. BIOTIN (UNKNOWN) [Concomitant]
  6. ASPIRIN (ACETYLSALICYLIC ACID) (UNKNOWN) (ACETYLSALICYLIC ACID) [Concomitant]
  7. MAGNESIUM (UNKNOWN) [Concomitant]
  8. VITAMIN D3 (COLECALCIFEROL) (UNKNOWN) [Concomitant]
  9. MULTIVITAMINS (TABLETS) [Concomitant]
  10. PRILOSEC (OMEPRAZOLE) (UNKNOWN) [Concomitant]
  11. BENADRYL (CLONALIN) (UNKNOWN) [Concomitant]

REACTIONS (3)
  - Road traffic accident [None]
  - Musculoskeletal chest pain [None]
  - Cough [None]
